FAERS Safety Report 8744515 (Version 2)
Quarter: 2013Q4

REPORT INFORMATION
  Report Type: Spontaneous
  Country: US (occurrence: US)
  Receive Date: 20120825
  Receipt Date: 20131105
  Transmission Date: 20140711
  Serious: Yes (Other)
  Sender: FDA-Public Use
  Company Number: US-009507513-1208USA006715

PATIENT
  Sex: Female

DRUGS (5)
  1. SAPHRIS [Suspect]
     Indication: BIPOLAR DISORDER
     Dosage: 20 MG, QD
     Route: 048
     Dates: start: 20120531, end: 20120605
  2. ALLOPURINOL [Concomitant]
  3. GEMFIBROZIL [Concomitant]
  4. BACTRIM [Concomitant]
  5. COUGH, COLD, AND FLU THERAPIES (UNSPECIFIED) [Concomitant]

REACTIONS (4)
  - Dyspnoea [Recovered/Resolved]
  - Fatigue [Recovered/Resolved]
  - Listless [Recovered/Resolved]
  - Incorrect route of drug administration [Unknown]
